FAERS Safety Report 10996625 (Version 1)
Quarter: 2015Q2

REPORT INFORMATION
  Report Type: Spontaneous
  Country: US (occurrence: US)
  Receive Date: 20150408
  Receipt Date: 20150408
  Transmission Date: 20150821
  Serious: No
  Sender: FDA-Public Use
  Company Number: US-TEVA-552667ACC

PATIENT
  Age: 16 Year
  Sex: Female
  Weight: 54.48 kg

DRUGS (2)
  1. ABSORICA [Concomitant]
     Active Substance: ISOTRETINOIN
     Indication: ACNE
     Dosage: UNKNOWN FORM STRENGTH
     Route: 065
  2. PLAN B ONE-STEP [Suspect]
     Active Substance: LEVONORGESTREL
     Indication: POST COITAL CONTRACEPTION
     Route: 065
     Dates: start: 20150327

REACTIONS (1)
  - Vaginal haemorrhage [Not Recovered/Not Resolved]

NARRATIVE: CASE EVENT DATE: 20150401
